FAERS Safety Report 6297719-7 (Version None)
Quarter: 2009Q3

REPORT INFORMATION
  Report Type: 
  Country: None (occurrence: None)
  Receive Date: 20090805
  Receipt Date: 20090731
  Transmission Date: 20100115
  Serious: Yes (Hospitalization)
  Sender: FDA-Public Use
  Company Number: FR-ROCHE-637621

PATIENT
  Sex: Female
  Weight: 85.3 kg

DRUGS (11)
  1. MYCOPHENOLATE MOFETIL [Suspect]
     Dosage: TDD REPORTED AS 2G TO 500 MG
     Route: 065
     Dates: start: 20081231, end: 20090127
  2. ADVAGRAF [Suspect]
     Indication: DRUG USE FOR UNKNOWN INDICATION
     Dosage: DRUG NAME REPORTED AS TACROLIMUS (ADVAGRAF).
     Route: 065
     Dates: start: 20090423
  3. ADVAGRAF [Suspect]
     Route: 065
     Dates: start: 20090617
  4. CORTANCYL [Suspect]
     Indication: DRUG USE FOR UNKNOWN INDICATION
     Dosage: TDD REPORTED AS 20 TO 10 MG
     Route: 065
     Dates: start: 20090209
  5. NOVORAPID [Concomitant]
     Dates: start: 20090222
  6. ESIDRIX [Concomitant]
     Dates: start: 20090404
  7. IPERTEN [Concomitant]
     Dosage: TOTAL DAILY DOSE REPORTED AS 20
     Dates: start: 20090208
  8. CARDENSIEL [Concomitant]
     Dates: start: 20090303
  9. NOVOMIX [Concomitant]
     Dosage: DRUG NAME REPORTED AS NOVOMIX 30
     Dates: start: 20090507
  10. INIPOMP [Concomitant]
     Dosage: DRUG NAME REPORTED AS INIPOM. TDD REPORTED AS 40
     Dates: start: 20090327
  11. APROVEL [Concomitant]
     Dosage: TOTAL DAILY DOSE REPORTED AS 150
     Dates: start: 20090318

REACTIONS (2)
  - ISCHAEMIC STROKE [None]
  - PYELONEPHRITIS [None]
